FAERS Safety Report 6906193-6 (Version None)
Quarter: 2010Q3

REPORT INFORMATION
  Report Type: 
  Country: None (occurrence: None)
  Receive Date: 20100804
  Receipt Date: 20100723
  Transmission Date: 20110219
  Serious: Yes (Other)
  Sender: FDA-Public Use
  Company Number: PHHY2010NZ49646

PATIENT

DRUGS (2)
  1. GLEEVEC [Suspect]
     Route: 064
  2. GLEEVEC [Suspect]
     Dosage: 800 MG
     Route: 064

REACTIONS (2)
  - DRUG EXPOSURE DURING PREGNANCY [None]
  - FOETAL DISORDER [None]
